FAERS Safety Report 4556125-3 (Version None)
Quarter: 2005Q1

REPORT INFORMATION
  Report Type: 
  Country: None (occurrence: None)
  Receive Date: 20050114
  Receipt Date: 20041217
  Transmission Date: 20050727
  Serious: Yes (Other)
  Sender: FDA-Public Use
  Company Number: 200510043GDS

PATIENT
  Age: 49 Year
  Sex: Female
  Weight: 52 kg

DRUGS (2)
  1. ACTIMAX (MOXIFLOXACIN) [Suspect]
     Indication: SKIN INFLAMMATION
     Dosage: 400 MG, QD, ORAL
     Route: 048
     Dates: start: 20041217, end: 20041221
  2. ACTIMAX (MOXIFLOXACIN) [Suspect]
     Indication: SOFT TISSUE INFLAMMATION
     Dosage: 400 MG, QD, ORAL
     Route: 048
     Dates: start: 20041217, end: 20041221

REACTIONS (2)
  - BLINDNESS TRANSIENT [None]
  - BODY MASS INDEX DECREASED [None]
